FAERS Safety Report 6568890-4 (Version None)
Quarter: 2010Q1

REPORT INFORMATION
  Report Type: 
  Country: None (occurrence: None)
  Receive Date: 20100203
  Receipt Date: 20100126
  Transmission Date: 20100710
  Serious: Yes (Other)
  Sender: FDA-Public Use
  Company Number: US-NAPPMUNDI-USA-2010-0041906

PATIENT
  Sex: Female
  Weight: 55.329 kg

DRUGS (11)
  1. OXYCONTIN [Suspect]
     Indication: PAIN
  2. KALETRA [Suspect]
     Indication: HIV TEST POSITIVE
     Dosage: 4 TABLET, DAILY
     Route: 048
     Dates: start: 20020101
  3. TRUVADA [Concomitant]
     Indication: HIV TEST POSITIVE
     Route: 048
  4. TENOFOVIR DISOPROXIL FUMARATE [Concomitant]
     Indication: DRUG USE FOR UNKNOWN INDICATION
  5. ATORVASTATIN [Concomitant]
     Indication: BLOOD TRIGLYCERIDES INCREASED
     Dosage: 1 TABLET, Q24H
     Route: 048
  6. FOLIC ACID [Concomitant]
     Indication: DRUG USE FOR UNKNOWN INDICATION
  7. CLONAZEPAM [Concomitant]
     Indication: DRUG USE FOR UNKNOWN INDICATION
     Dosage: 6 UNK, UNK
     Route: 048
  8. TRAZODONE [Concomitant]
     Indication: DRUG USE FOR UNKNOWN INDICATION
  9. LOVAZA [Concomitant]
     Indication: BLOOD TRIGLYCERIDES
     Dosage: 2 TABLET, Q24H
     Route: 048
     Dates: start: 20090601
  10. METOPROLOL [Concomitant]
     Indication: HEART RATE IRREGULAR
     Dosage: UNK
  11. ASPIRIN [Concomitant]
     Indication: DRUG USE FOR UNKNOWN INDICATION
     Dosage: 81 MG, Q24H
     Route: 048

REACTIONS (10)
  - BLOOD TRIGLYCERIDES INCREASED [None]
  - CARDIAC VALVE DISEASE [None]
  - DECREASED APPETITE [None]
  - DILATATION VENTRICULAR [None]
  - GALLBLADDER ENLARGEMENT [None]
  - GASTRIC DISORDER [None]
  - MYOCARDIAL CALCIFICATION [None]
  - SUPRAVENTRICULAR EXTRASYSTOLES [None]
  - VENTRICULAR EXTRASYSTOLES [None]
  - WEIGHT DECREASED [None]
